FAERS Safety Report 5494998-0 (Version None)
Quarter: 2007Q4

REPORT INFORMATION
  Report Type: 
  Country: None (occurrence: None)
  Receive Date: 20071015
  Receipt Date: 20070413
  Transmission Date: 20080405
  Serious: Yes (Other)
  Sender: FDA-Public Use
  Company Number: S07-USA-01605-01

PATIENT
  Age: 83 Year
  Sex: Female

DRUGS (4)
  1. LEXAPRO [Suspect]
     Indication: DEPRESSION
     Dosage: 5 MG QD PO
     Route: 048
     Dates: start: 20070412, end: 20070412
  2. LITHIUM [Concomitant]
  3. SYNTHROID [Concomitant]
  4. PEPCID [Concomitant]

REACTIONS (1)
  - SEROTONIN SYNDROME [None]
